FAERS Safety Report 4804730-9 (Version None)
Quarter: 2005Q4

REPORT INFORMATION
  Report Type: 
  Country: None (occurrence: None)
  Receive Date: 20051020
  Receipt Date: 20051012
  Transmission Date: 20060501
  Serious: Yes (Other)
  Sender: FDA-Public Use
  Company Number: DE-JNJFOC-20051002837

PATIENT
  Age: 40 Year
  Sex: Male

DRUGS (1)
  1. RISPERDAL [Suspect]
     Dosage: 6 MG AT NIGHT
     Route: 048

REACTIONS (1)
  - ARRHYTHMIA [None]
